FAERS Safety Report 11806734 (Version 2)
Quarter: 2015Q4

REPORT INFORMATION
  Report Type: Spontaneous
  Country: US (occurrence: US)
  Receive Date: 20151207
  Receipt Date: 20151217
  Transmission Date: 20160305
  Serious: No
  Sender: FDA-Public Use
  Company Number: US-009507513-1512USA003547

PATIENT
  Age: 35 Year
  Sex: Female
  Weight: 79.82 kg

DRUGS (1)
  1. NEXPLANON [Suspect]
     Active Substance: ETONOGESTREL
     Indication: CONTRACEPTION
     Dosage: UNK, 3 YEARS
     Route: 059
     Dates: start: 20151002

REACTIONS (1)
  - Menstruation delayed [Unknown]

NARRATIVE: CASE EVENT DATE: 201511
